FAERS Safety Report 10356749 (Version 2)
Quarter: 2014Q3

REPORT INFORMATION
  Report Type: Other
  Country: US (occurrence: US)
  Receive Date: 20140801
  Receipt Date: 20140801
  Transmission Date: 20150326
  Serious: Yes (Hospitalization, Other)
  Sender: FDA-Public Use
  Company Number: US-GSKPPD-2014GSK001854

PATIENT
  Age: 51 Year
  Sex: Female

DRUGS (3)
  1. ISOSORBIDE [Concomitant]
     Active Substance: ISOSORBIDE
     Route: 048
     Dates: start: 200810
  2. AVANDIA [Suspect]
     Active Substance: ROSIGLITAZONE MALEATE
     Indication: DIABETES MELLITUS
     Dosage: AVANDIA WAS NOT LISTED AMONG THE PATIENTS RECORDS REVIEWED.
     Route: 048
  3. ASPIRIN. [Concomitant]
     Active Substance: ASPIRIN
     Route: 048
     Dates: start: 200810

REACTIONS (5)
  - Coronary artery disease [Recovered/Resolved]
  - Chest pain [Recovered/Resolved]
  - Mitral valve incompetence [Recovered/Resolved]
  - Cardiac failure congestive [None]
  - Hypertensive heart disease [Recovered/Resolved]

NARRATIVE: CASE EVENT DATE: 20081008
